FAERS Safety Report 21524318 (Version 1)
Quarter: 2022Q4

REPORT INFORMATION
  Report Type: Spontaneous
  Country: FR (occurrence: FR)
  Receive Date: 20221029
  Receipt Date: 20221029
  Transmission Date: 20230112
  Serious: Yes (Other)
  Sender: FDA-Public Use
  Company Number: None

PATIENT
  Age: 54 Year
  Sex: Female

DRUGS (2)
  1. QUETIAPINE [Suspect]
     Active Substance: QUETIAPINE
     Indication: Depression
     Dosage: 800 MG, QD (400MG LP 2CP SOIR)
     Route: 048
  2. CLOMIPRAMINE HYDROCHLORIDE [Suspect]
     Active Substance: CLOMIPRAMINE HYDROCHLORIDE
     Indication: Depression
     Dosage: 25 MG, QD (25 MG A PARTIR DU 21/0350 MG A PARTIR DU 06/04 75 MG A PARTIR DU 12/04 100 MG A PARTIR DU
     Route: 048
     Dates: start: 20220321

REACTIONS (1)
  - Hepatic cytolysis [Not Recovered/Not Resolved]
